FAERS Safety Report 8380649-4 (Version None)
Quarter: 2012Q2

REPORT INFORMATION
  Report Type: 
  Country: None (occurrence: None)
  Receive Date: 20120523
  Receipt Date: 20120518
  Transmission Date: 20120825
  Serious: Yes (Hospitalization)
  Sender: FDA-Public Use
  Company Number: CA-CELGENEUS-028-CCAZA-12042245

PATIENT
  Sex: Male

DRUGS (15)
  1. AZACITIDINE [Suspect]
     Dosage: 75 MILLIGRAM/SQ. METER
     Route: 058
     Dates: start: 20120330, end: 20120405
  2. ATORVASTATIN CALCIUM [Concomitant]
     Dosage: 40 MILLIGRAM
     Route: 048
  3. NITROGLYCERIN [Concomitant]
     Dosage: .6 MILLIGRAM
     Route: 065
  4. PREDNISONE [Concomitant]
     Indication: RHEUMATOID ARTHRITIS
     Dosage: 25 MILLIGRAM
     Route: 048
  5. FLOMAX [Concomitant]
     Dosage: .4 MILLIGRAM
     Route: 048
  6. OMEPRAZOLE [Concomitant]
     Dosage: 20 MILLIGRAM
     Route: 065
  7. ALENDRONATE SODIUM [Concomitant]
     Dosage: 70 MILLIGRAM
     Route: 065
  8. ASPIRIN [Concomitant]
     Dosage: 81 MILLIGRAM
     Route: 048
  9. BISOPROLOL FUMARATE [Concomitant]
     Route: 048
  10. ACETAMINOPHEN [Concomitant]
     Dosage: 325MG-650MG
     Route: 048
  11. TRAMADOL HYDROCHLORIDE [Concomitant]
     Route: 065
  12. NITROGLYCERIN SPRAY [Concomitant]
     Dosage: .4 MILLIGRAM
     Route: 065
  13. RABEPRAZOLE SODIUM [Concomitant]
     Dosage: 20 MILLIGRAM
     Route: 048
  14. DILAUDID [Concomitant]
     Dosage: 2-4MG
     Route: 048
  15. RITUXIMAB [Concomitant]
     Indication: RHEUMATOID ARTHRITIS
     Route: 065

REACTIONS (1)
  - ORGANISING PNEUMONIA [None]
